APPROVED DRUG PRODUCT: TOFACITINIB CITRATE
Active Ingredient: TOFACITINIB CITRATE
Strength: EQ 5MG BASE
Dosage Form/Route: TABLET;ORAL
Application: A209738 | Product #001
Applicant: MICRO LABS LTD
Approved: Mar 13, 2023 | RLD: No | RS: No | Type: DISCN